FAERS Safety Report 12559199 (Version 1)
Quarter: 2016Q3

REPORT INFORMATION
  Report Type: Spontaneous
  Country: US (occurrence: US)
  Receive Date: 20160715
  Receipt Date: 20160715
  Transmission Date: 20161109
  Serious: No
  Sender: FDA-Public Use
  Company Number: US-TEVA-666649USA

PATIENT
  Age: 32 Year
  Sex: Female
  Weight: 108.96 kg

DRUGS (2)
  1. ZECUITY [Suspect]
     Active Substance: SUMATRIPTAN SUCCINATE
     Indication: MIGRAINE
     Route: 062
     Dates: start: 201604, end: 201604
  2. ZECUITY [Suspect]
     Active Substance: SUMATRIPTAN SUCCINATE
     Route: 062
     Dates: start: 20160518, end: 20160518

REACTIONS (4)
  - Application site pain [Unknown]
  - Application site erythema [Recovering/Resolving]
  - Headache [Unknown]
  - Drug ineffective [Unknown]

NARRATIVE: CASE EVENT DATE: 201604
